FAERS Safety Report 11603945 (Version 1)
Quarter: 2015Q4

REPORT INFORMATION
  Report Type: Spontaneous
  Country: US (occurrence: None)
  Receive Date: 20151006
  Receipt Date: 20151006
  Transmission Date: 20160304
  Serious: Yes (Other)
  Sender: FDA-Public Use
  Company Number: None

PATIENT
  Age: 85 Year
  Sex: Female
  Weight: 70 kg

DRUGS (13)
  1. MULTIVIT [Concomitant]
     Active Substance: VITAMINS
  2. ACETAMINOPHEN. [Concomitant]
     Active Substance: ACETAMINOPHEN
  3. SODIUM CHLORIDE NASAL SPRAY [Concomitant]
  4. WARFARIN [Concomitant]
     Active Substance: WARFARIN
  5. CITRICAL D [Concomitant]
  6. LOSARTAN. [Concomitant]
     Active Substance: LOSARTAN
  7. OMEPRAZOL [Concomitant]
     Active Substance: OMEPRAZOLE
  8. PRAVASTATIN [Concomitant]
     Active Substance: PRAVASTATIN\PRAVASTATIN SODIUM
  9. ALIGN PROBIOTIC [Concomitant]
  10. SODIUM CHLORIDE. [Concomitant]
     Active Substance: SODIUM CHLORIDE
  11. EMLA [Concomitant]
     Active Substance: LIDOCAINE\PRILOCAINE
  12. DOCETAXEL 10MG/ML HOSPIRA [Suspect]
     Active Substance: DOCETAXEL
     Indication: SOFT TISSUE SARCOMA
     Dosage: 175MG?ONCE X 2 DOSES ?
     Route: 042
     Dates: start: 20150915, end: 20150929
  13. ONDANSETRON [Concomitant]
     Active Substance: ONDANSETRON

REACTIONS (2)
  - Erythema [None]
  - Pain in extremity [None]

NARRATIVE: CASE EVENT DATE: 20151002
